FAERS Safety Report 20952246 (Version 2)
Quarter: 2022Q2

REPORT INFORMATION
  Report Type: Spontaneous
  Country: JP (occurrence: JP)
  Receive Date: 20220613
  Receipt Date: 20220622
  Transmission Date: 20220721
  Serious: Yes (Hospitalization)
  Sender: FDA-Public Use
  Company Number: JP-UCBJ-CD202205108UCBPHAPROD

PATIENT
  Age: 60 Year
  Sex: Male

DRUGS (2)
  1. VIMPAT [Suspect]
     Active Substance: LACOSAMIDE
     Indication: Epilepsy
     Dosage: 100 MILLIGRAM, 2X/DAY (BID)
     Route: 048
  2. VIMPAT [Suspect]
     Active Substance: LACOSAMIDE
     Indication: Partial seizures

REACTIONS (2)
  - Cerebral infarction [Not Recovered/Not Resolved]
  - Altered state of consciousness [Not Recovered/Not Resolved]
